FAERS Safety Report 5390889-4 (Version None)
Quarter: 2007Q3

REPORT INFORMATION
  Report Type: 
  Country: None (occurrence: None)
  Receive Date: 20070716
  Receipt Date: 20070709
  Transmission Date: 20080115
  Serious: Yes (Hospitalization, Other)
  Sender: FDA-Public Use
  Company Number: 2007SP013857

PATIENT
  Age: 60 Year
  Sex: Female

DRUGS (2)
  1. PEG-INTRON [Suspect]
     Indication: HEPATITIS C
     Dosage: SC
     Route: 058
     Dates: start: 20070606
  2. RIBAVIRIN [Suspect]
     Dosage: PO
     Route: 048
     Dates: start: 20070606

REACTIONS (5)
  - GALLBLADDER DISORDER [None]
  - GINGIVITIS [None]
  - HEADACHE [None]
  - PAIN [None]
  - PYREXIA [None]
